FAERS Safety Report 23677216 (Version 1)
Quarter: 2024Q1

REPORT INFORMATION
  Report Type: Spontaneous
  Country: US (occurrence: None)
  Receive Date: 20240326
  Receipt Date: 20240326
  Transmission Date: 20240410
  Serious: Yes (Life-Threatening, Hospitalization)
  Sender: FDA-Public Use
  Company Number: None

PATIENT
  Age: 57 Year
  Sex: Female
  Weight: 118 kg

DRUGS (1)
  1. MIRCERA [Suspect]
     Active Substance: METHOXY POLYETHYLENE GLYCOL-EPOETIN BETA
     Indication: Anaemia
     Dosage: OTHER FREQUENCY : BIWEEKLY;?
     Route: 042
     Dates: start: 20240325, end: 20240325

REACTIONS (2)
  - Flushing [None]
  - Unresponsive to stimuli [None]

NARRATIVE: CASE EVENT DATE: 20240325
